FAERS Safety Report 5456619-2 (Version None)
Quarter: 2007Q3

REPORT INFORMATION
  Report Type: 
  Country: None (occurrence: None)
  Receive Date: 20070918
  Receipt Date: 20070904
  Transmission Date: 20080115
  Serious: Yes (Other)
  Sender: FDA-Public Use
  Company Number: DE-GENENTECH-247727

PATIENT
  Sex: Female
  Weight: 78.3 kg

DRUGS (2)
  1. AVASTIN [Suspect]
     Indication: BREAST CANCER METASTATIC
     Dosage: 780 MG, QD
     Dates: start: 20070606, end: 20070816
  2. PACLITAXEL [Suspect]
     Indication: BREAST CANCER METASTATIC
     Dosage: 166.5 MG, QD
     Dates: start: 20070606, end: 20070816

REACTIONS (2)
  - DERMATITIS ACNEIFORM [None]
  - METASTASES TO CENTRAL NERVOUS SYSTEM [None]
